FAERS Safety Report 16568206 (Version 1)
Quarter: 2019Q3

REPORT INFORMATION
  Report Type: Spontaneous
  Country: GR (occurrence: GR)
  Receive Date: 20190712
  Receipt Date: 20190712
  Transmission Date: 20191004
  Serious: Yes (Hospitalization)
  Sender: FDA-Public Use
  Company Number: GR-PFIZER INC-2019295653

PATIENT
  Age: 37 Year
  Sex: Male

DRUGS (4)
  1. PARACETAMOL [Suspect]
     Active Substance: ACETAMINOPHEN
     Dosage: 40 DF, UNK
  2. IBUPROFEN. [Suspect]
     Active Substance: IBUPROFEN
     Dosage: 20 DF, UNK
  3. ASPIRIN [ACETYLSALICYLIC ACID] [Suspect]
     Active Substance: ASPIRIN
     Dosage: 40 DF, UNK
  4. NIMESULID [Suspect]
     Active Substance: NIMESULIDE
     Dosage: 10 DF, UNK

REACTIONS (2)
  - Overdose [Unknown]
  - Acute hepatic failure [Recovering/Resolving]
